FAERS Safety Report 5141321-7 (Version None)
Quarter: 2006Q4

REPORT INFORMATION
  Report Type: 
  Country: None (occurrence: None)
  Receive Date: 20061101
  Receipt Date: 20061010
  Transmission Date: 20070319
  Serious: Yes (Hospitalization, Other)
  Sender: FDA-Public Use
  Company Number: GB-AVENTIS-200620615GDDC

PATIENT
  Sex: Female

DRUGS (1)
  1. GLYBURIDE [Suspect]
     Indication: DIABETES MELLITUS

REACTIONS (5)
  - CARDIAC FAILURE CONGESTIVE [None]
  - HYPOGLYCAEMIA [None]
  - POST PROCEDURAL COMPLICATION [None]
  - SWELLING [None]
  - VASCULAR GRAFT COMPLICATION [None]
